FAERS Safety Report 8177957-9 (Version None)
Quarter: 2012Q1

REPORT INFORMATION
  Report Type: 
  Country: None (occurrence: None)
  Receive Date: 20120301
  Receipt Date: 20120221
  Transmission Date: 20120608
  Serious: Yes (Hospitalization)
  Sender: FDA-Public Use
  Company Number: US-BAYER-2012-018388

PATIENT
  Age: 35 Year
  Sex: Female
  Weight: 91 kg

DRUGS (4)
  1. LEXAPRO [Concomitant]
  2. RELPAX [Concomitant]
  3. THYROID TAB [Concomitant]
  4. YAZ [Suspect]
     Indication: CONTRACEPTION
     Route: 048

REACTIONS (1)
  - PULMONARY EMBOLISM [None]
